FAERS Safety Report 25985006 (Version 1)
Quarter: 2025Q4

REPORT INFORMATION
  Report Type: Report from Study
  Country: US (occurrence: US)
  Receive Date: 20251031
  Receipt Date: 20251031
  Transmission Date: 20260117
  Serious: Yes (Other)
  Sender: ABBVIE
  Company Number: US-ABBVIE-6523912

PATIENT
  Age: 68 Year
  Sex: Male

DRUGS (3)
  1. VENCLEXTA [Suspect]
     Active Substance: VENETOCLAX
     Indication: Mantle cell lymphoma
     Dosage: STOPPED 2 DAYS BEFORE T CELL COLLECTION
     Route: 048
     Dates: start: 202506
  2. VENCLEXTA [Suspect]
     Active Substance: VENETOCLAX
     Indication: Mantle cell lymphoma
     Dosage: START DATE 2025 ?MISSED DOSE
     Route: 048
     Dates: end: 20251025
  3. VENCLEXTA [Suspect]
     Active Substance: VENETOCLAX
     Indication: Mantle cell lymphoma
     Dosage: FIRST ADMIN DATE 2025
     Route: 048

REACTIONS (6)
  - Retinal haemorrhage [Recovering/Resolving]
  - Vitreous floaters [Unknown]
  - Ocular discomfort [Recovering/Resolving]
  - Off label use [Unknown]
  - Fatigue [Unknown]
  - Eye colour change [Unknown]

NARRATIVE: CASE EVENT DATE: 20250101
